FAERS Safety Report 4409383-X (Version None)
Quarter: 2004Q3

REPORT INFORMATION
  Report Type: 
  Country: None (occurrence: None)
  Receive Date: 20040727
  Receipt Date: 20040727
  Transmission Date: 20050211
  Serious: No
  Sender: FDA-Public Use
  Company Number: None

PATIENT
  Age: 50 Year
  Sex: Female
  Weight: 82 kg

DRUGS (9)
  1. DAPTOMYCIN [Suspect]
     Indication: BURSITIS INFECTIVE
     Dosage: IV
     Route: 042
  2. CIPROFLOXACIN [Suspect]
     Indication: BURSITIS INFECTIVE
     Dosage: 500 MG BID PO
     Route: 048
  3. NORCO [Concomitant]
  4. PRILOSEC [Concomitant]
  5. ATARAX [Concomitant]
  6. SINGULAIR [Concomitant]
  7. COMBIVENT [Concomitant]
  8. LISINOPRIL [Concomitant]
  9. VANCOMYCIN HCL [Concomitant]

REACTIONS (2)
  - PRURITUS [None]
  - RASH [None]
